FAERS Safety Report 17338186 (Version 2)
Quarter: 2020Q1

REPORT INFORMATION
  Report Type: Spontaneous
  Country: US (occurrence: US)
  Receive Date: 20200129
  Receipt Date: 20200214
  Transmission Date: 20200409
  Serious: Yes (Other)
  Sender: FDA-Public Use
  Company Number: US-GLAXOSMITHKLINE-US2020012968

PATIENT
  Sex: Male

DRUGS (1)
  1. TRELEGY ELLIPTA [Suspect]
     Active Substance: FLUTICASONE FUROATE\UMECLIDINIUM BROMIDE\VILANTEROL TRIFENATATE
     Indication: PRODUCT USED FOR UNKNOWN INDICATION
     Dosage: 1 PUFF(S), QD/100/62.5/25 MCG
     Route: 065
     Dates: start: 201905

REACTIONS (3)
  - Wrong technique in device usage process [Unknown]
  - Neoplasm malignant [Unknown]
  - Product complaint [Unknown]

NARRATIVE: CASE EVENT DATE: 2019
